FAERS Safety Report 20612228 (Version 3)
Quarter: 2022Q2

REPORT INFORMATION
  Report Type: Spontaneous
  Country: BA (occurrence: BA)
  Receive Date: 20220318
  Receipt Date: 20220401
  Transmission Date: 20220721
  Serious: Yes (Death, Other)
  Sender: FDA-Public Use
  Company Number: BA-009507513-2203BIH005314

PATIENT
  Age: 54 Year
  Sex: Female

DRUGS (2)
  1. KEYTRUDA [Suspect]
     Active Substance: PEMBROLIZUMAB
     Indication: Metastatic malignant melanoma
     Dosage: 200 MILLIGRAMS EVERY 21 DAYS
     Dates: start: 20191008
  2. KEYTRUDA [Suspect]
     Active Substance: PEMBROLIZUMAB
     Dosage: 200 MILLIGRAMS EVERY 21 DAYS
     Dates: start: 20191029

REACTIONS (4)
  - Malignant neoplasm progression [Fatal]
  - Hepatitis [Recovered/Resolved]
  - Hyperthyroidism [Recovered/Resolved]
  - Thyroiditis [Recovered/Resolved]

NARRATIVE: CASE EVENT DATE: 20200403
